FAERS Safety Report 10338772 (Version 2)
Quarter: 2014Q4

REPORT INFORMATION
  Report Type: Spontaneous
  Country: US (occurrence: US)
  Receive Date: 20140724
  Receipt Date: 20141008
  Transmission Date: 20150528
  Serious: Yes (Life-Threatening, Hospitalization)
  Sender: FDA-Public Use
  Company Number: US-BAYER-2014-109292

PATIENT
  Age: 19 Year
  Sex: Female
  Weight: 51.7 kg

DRUGS (3)
  1. MIRENA [Suspect]
     Active Substance: LEVONORGESTREL
     Indication: CONTRACEPTION
     Dosage: 20 MCG/24HR, CONT
     Route: 015
     Dates: start: 20120515, end: 20130107
  2. FLAGYL [Concomitant]
     Active Substance: METRONIDAZOLE\METRONIDAZOLE HYDROCHLORIDE
  3. PROCARDIA [Concomitant]
     Active Substance: NIFEDIPINE

REACTIONS (11)
  - Embedded device [None]
  - Procedural pain [None]
  - Abdominal pain [None]
  - Medical device discomfort [None]
  - Anxiety [None]
  - Anhedonia [None]
  - Injury [None]
  - Scar [None]
  - Infection [None]
  - Emotional distress [None]
  - General physical health deterioration [None]

NARRATIVE: CASE EVENT DATE: 201212
